FAERS Safety Report 4825774-7 (Version None)
Quarter: 2005Q4

REPORT INFORMATION
  Report Type: 
  Country: None (occurrence: None)
  Receive Date: 20051109
  Receipt Date: 20051027
  Transmission Date: 20060501
  Serious: Yes (Hospitalization, Other)
  Sender: FDA-Public Use
  Company Number: 2005085886

PATIENT
  Sex: Male
  Weight: 91.6266 kg

DRUGS (3)
  1. CELEBREX [Suspect]
     Indication: ARTHRITIS
  2. CELEBREX [Suspect]
     Indication: BONE DISORDER
  3. CELEBREX [Suspect]
     Indication: HIP ARTHROPLASTY

REACTIONS (6)
  - BLOOD PRESSURE ABNORMAL [None]
  - DEAFNESS [None]
  - EAR DISCOMFORT [None]
  - MIGRAINE [None]
  - TINNITUS [None]
  - VOMITING [None]
